FAERS Safety Report 25531425 (Version 1)
Quarter: 2025Q3

REPORT INFORMATION
  Report Type: Report from Study
  Country: US (occurrence: US)
  Receive Date: 20250708
  Receipt Date: 20250708
  Transmission Date: 20251021
  Serious: Yes (Other)
  Sender: ABBVIE
  Company Number: US-ABBVIE-6302972

PATIENT
  Sex: Female

DRUGS (1)
  1. CREON [Suspect]
     Active Substance: PANCRELIPASE AMYLASE\PANCRELIPASE LIPASE\PANCRELIPASE PROTEASE
     Indication: Product used for unknown indication
     Route: 048
     Dates: start: 202301

REACTIONS (4)
  - Macular degeneration [Unknown]
  - Corneal abrasion [Recovering/Resolving]
  - Abdominal pain upper [Not Recovered/Not Resolved]
  - Eye infection [Recovering/Resolving]
